FAERS Safety Report 6232449-9 (Version None)
Quarter: 2009Q2

REPORT INFORMATION
  Report Type: 
  Country: None (occurrence: None)
  Receive Date: 20090617
  Receipt Date: 20090610
  Transmission Date: 20091009
  Serious: Yes (Hospitalization)
  Sender: FDA-Public Use
  Company Number: TW-ROCHE-604196

PATIENT
  Sex: Male
  Weight: 65 kg

DRUGS (7)
  1. INTERFERON ALFA-2A [Suspect]
     Indication: RENAL CELL CARCINOMA
     Dosage: DOSE: 6HU.  FREQUENCY: TIW
     Route: 058
     Dates: start: 20081210, end: 20090330
  2. BEVACIZUMAB [Suspect]
     Indication: RENAL CELL CARCINOMA
     Dosage: FREQUENCY: BIW.  ROUTE: IVF
     Route: 042
     Dates: start: 20081210, end: 20090330
  3. ACETAMINOPHEN [Concomitant]
     Indication: PROPHYLAXIS
     Dosage: INDICATION: PROPHYLAXIS OF ^FLU-LIKE^ SYMPTOMS.  FREQUENCY: TIW
     Route: 048
     Dates: start: 20081210
  4. COLCHICINE [Concomitant]
     Indication: GOUT
     Dosage: FREQUENCY: BID
     Route: 048
     Dates: start: 20070913
  5. BENZBROMARON [Concomitant]
     Indication: GOUT
     Dosage: FREQUENCY: QD
     Route: 048
     Dates: start: 20060713
  6. SCANOL [Concomitant]
  7. IRBESARTAN [Concomitant]
     Indication: HYPERTENSION
     Dates: start: 20081211

REACTIONS (5)
  - ARTERIOSCLEROSIS CORONARY ARTERY [None]
  - HAEMORRHAGIC STROKE [None]
  - HEADACHE [None]
  - PAIN [None]
  - THALAMIC INFARCTION [None]
